FAERS Safety Report 13727675 (Version 3)
Quarter: 2017Q3

REPORT INFORMATION
  Report Type: Spontaneous
  Country: US (occurrence: US)
  Receive Date: 20170707
  Receipt Date: 20170816
  Transmission Date: 20171127
  Serious: No
  Sender: FDA-Public Use
  Company Number: US-PFIZER INC-2017292706

PATIENT
  Age: 72 Year
  Sex: Female
  Weight: 104.33 kg

DRUGS (1)
  1. LYRICA [Suspect]
     Active Substance: PREGABALIN
     Indication: INTERCOSTAL NEURALGIA
     Dosage: 75 MG, 1X/DAY
     Route: 048
     Dates: start: 201707

REACTIONS (1)
  - Drug effect delayed [Unknown]
